FAERS Safety Report 6228863-8 (Version None)
Quarter: 2009Q2

REPORT INFORMATION
  Report Type: 
  Country: None (occurrence: None)
  Receive Date: 20090611
  Receipt Date: 20090611
  Transmission Date: 20091009
  Serious: Yes (Other)
  Sender: FDA-Public Use
  Company Number: None

PATIENT
  Sex: Male

DRUGS (2)
  1. ZONISAMIDE [Suspect]
     Indication: EPILEPSY
     Dosage: 400MG CAPSULE BID 300/600
     Dates: start: 20070605
  2. ZONISAMIDE [Suspect]
     Indication: EPILEPSY
     Dosage: 400MG CAPSULE BID 300/600
     Dates: start: 20071227

REACTIONS (1)
  - CONVULSION [None]
